FAERS Safety Report 18440698 (Version 3)
Quarter: 2021Q1

REPORT INFORMATION
  Report Type: Report from Study
  Country: UA (occurrence: UA)
  Receive Date: 20201029
  Receipt Date: 20210121
  Transmission Date: 20210419
  Serious: Yes (Other)
  Sender: FDA-Public Use
  Company Number: UA-REGENERON PHARMACEUTICALS, INC.-2020-80493

PATIENT

DRUGS (1)
  1. EYLEA [Suspect]
     Active Substance: AFLIBERCEPT
     Indication: RETINOPATHY OF PREMATURITY
     Dosage: 0.1 ML, ONCE, STUDY PERIOD: FOLLOW?UP
     Route: 031
     Dates: start: 20200710, end: 20200710

REACTIONS (3)
  - Overdose [Recovered/Resolved]
  - Corneal oedema [Recovered/Resolved]
  - Intraocular pressure increased [Recovered/Resolved]

NARRATIVE: CASE EVENT DATE: 20200710
